FAERS Safety Report 9796307 (Version 1)
Quarter: 2014Q1

REPORT INFORMATION
  Report Type: Spontaneous
  Country: US (occurrence: US)
  Receive Date: 20140103
  Receipt Date: 20140103
  Transmission Date: 20141002
  Serious: No
  Sender: FDA-Public Use
  Company Number: US-009507513-1401USA000247

PATIENT
  Sex: Female

DRUGS (1)
  1. CLARITIN-D-24 [Suspect]
     Indication: RESPIRATORY TRACT CONGESTION
     Dosage: 10 MG, ONCE
     Route: 048

REACTIONS (1)
  - Insomnia [Unknown]
